FAERS Safety Report 7457041-X (Version None)
Quarter: 2011Q1

REPORT INFORMATION
  Report Type: 
  Country: None (occurrence: None)
  Receive Date: 20110302
  Receipt Date: 20110119
  Transmission Date: 20110831
  Serious: No
  Sender: FDA-Public Use
  Company Number: 023820

PATIENT
  Sex: Male
  Weight: 102.1 kg

DRUGS (3)
  1. CIMZIA [Suspect]
     Indication: CROHN'S DISEASE
     Dosage: (2 SHOTS ONE IN EACH SIDE OF ABDOMEN SUBCUTANEOUS)
     Route: 058
     Dates: start: 20101102
  2. FOLIC ACID [Concomitant]
  3. PREDNISONE TAB [Concomitant]

REACTIONS (3)
  - ARTHRALGIA [None]
  - PRURITUS [None]
  - JOINT STIFFNESS [None]
